FAERS Safety Report 8580605-7 (Version None)
Quarter: 2012Q3

REPORT INFORMATION
  Report Type: 
  Country: None (occurrence: None)
  Receive Date: 20120809
  Receipt Date: 20120803
  Transmission Date: 20120928
  Serious: Yes (Hospitalization)
  Sender: FDA-Public Use
  Company Number: CY-AMGEN-CYPSP2012045141

PATIENT
  Age: 72 Year
  Sex: Female
  Weight: 60 kg

DRUGS (12)
  1. LEVOTHYROXINE SODIUM [Concomitant]
     Dosage: 50 MG, UNK
  2. ENALAPRIL MALEATE [Concomitant]
     Dosage: 30 MG, UNK
  3. WARFARIN                           /00014802/ [Concomitant]
  4. SIMVASTATIN [Concomitant]
     Dosage: 20 MG, QD
  5. VENTOLIN [Concomitant]
     Route: 055
  6. OSTEOCARE [Concomitant]
  7. BECLAZONE [Concomitant]
     Route: 055
  8. CORTICOSTEROIDS [Concomitant]
     Indication: ASTHMA
  9. MONONITRAT [Concomitant]
     Dosage: 30 MG, QD
  10. PROLIA [Suspect]
     Indication: OSTEOPOROSIS
     Dosage: 60 MG, Q6MO
     Route: 058
     Dates: start: 20120525
  11. FUROSEMID                          /00032601/ [Concomitant]
     Dosage: 40 MG, QD
  12. DILTIAZEM [Concomitant]
     Dosage: 60 MG, TID

REACTIONS (3)
  - DIVERTICULITIS [None]
  - WHITE BLOOD CELL COUNT INCREASED [None]
  - C-REACTIVE PROTEIN INCREASED [None]
